FAERS Safety Report 13136414 (Version 2)
Quarter: 2017Q1

REPORT INFORMATION
  Report Type: Spontaneous
  Country: TR (occurrence: TR)
  Receive Date: 20170122
  Receipt Date: 20170307
  Transmission Date: 20170428
  Serious: Yes (Hospitalization)
  Sender: FDA-Public Use
  Company Number: PHHY2017TR006808

PATIENT
  Age: 23 Year
  Sex: Female

DRUGS (1)
  1. METHYLPHENIDATE. [Suspect]
     Active Substance: METHYLPHENIDATE
     Indication: ATTENTION DEFICIT/HYPERACTIVITY DISORDER
     Dosage: 18 MG, QD
     Route: 065

REACTIONS (4)
  - Vision blurred [Unknown]
  - Optic disc haemorrhage [Unknown]
  - Intraocular pressure increased [Recovering/Resolving]
  - Open angle glaucoma [Recovered/Resolved]
